FAERS Safety Report 5931263-9 (Version None)
Quarter: 2008Q4

REPORT INFORMATION
  Report Type: 
  Country: None (occurrence: None)
  Receive Date: 20081027
  Receipt Date: 20081016
  Transmission Date: 20090506
  Serious: Yes (Death, Life-Threatening, Hospitalization)
  Sender: FDA-Public Use
  Company Number: BR-AMGEN-US250760

PATIENT
  Sex: Male

DRUGS (7)
  1. PANITUMUMAB [Suspect]
     Indication: COLORECTAL CANCER
     Route: 042
     Dates: start: 20071003, end: 20071017
  2. OXALIPLATIN [Concomitant]
     Route: 042
     Dates: start: 20071003, end: 20071017
  3. FLUOROURACIL [Concomitant]
     Route: 040
     Dates: start: 20071003, end: 20071017
  4. FLUOROURACIL [Concomitant]
     Route: 042
     Dates: start: 20071003, end: 20071017
  5. LEUCOVORIN CALCIUM [Concomitant]
     Route: 042
     Dates: start: 20071003, end: 20071017
  6. CALCIUM [Concomitant]
     Route: 048
  7. RADIATION THERAPY [Concomitant]

REACTIONS (2)
  - INTESTINAL PERFORATION [None]
  - SEPSIS [None]
